APPROVED DRUG PRODUCT: AMLODIPINE BESYLATE
Active Ingredient: AMLODIPINE BESYLATE
Strength: EQ 10MG BASE
Dosage Form/Route: TABLET;ORAL
Application: A090752 | Product #002 | TE Code: AB
Applicant: CHINA RESOURCES SAIKE PHARMACEUTICAL CO LTD
Approved: Apr 15, 2011 | RLD: No | RS: No | Type: RX